FAERS Safety Report 18558577 (Version 2)
Quarter: 2020Q4

REPORT INFORMATION
  Report Type: Report from Study
  Country: ID (occurrence: ID)
  Receive Date: 20201130
  Receipt Date: 20201211
  Transmission Date: 20210114
  Serious: Yes (Other)
  Sender: FDA-Public Use
  Company Number: NVSC2020ID313705

PATIENT
  Sex: Female

DRUGS (2)
  1. GLIVEC [Suspect]
     Active Substance: IMATINIB MESYLATE
     Indication: CHRONIC MYELOID LEUKAEMIA
     Dosage: 400 MG (400MG X 1)
     Route: 065
     Dates: start: 20071002, end: 20170726
  2. GLIVEC [Suspect]
     Active Substance: IMATINIB MESYLATE
     Dosage: 600 MG (600MG X 1)
     Route: 065
     Dates: start: 20170727

REACTIONS (7)
  - Diarrhoea [Recovered/Resolved]
  - Heart rate irregular [Recovering/Resolving]
  - Alopecia [Recovered/Resolved]
  - Thyroid cancer [Unknown]
  - Inflammation [Recovering/Resolving]
  - Second primary malignancy [Unknown]
  - Blood thyroid stimulating hormone increased [Recovering/Resolving]
